FAERS Safety Report 13451493 (Version 1)
Quarter: 2017Q2

REPORT INFORMATION
  Report Type: Spontaneous
  Country: DE (occurrence: DE)
  Receive Date: 20170418
  Receipt Date: 20170418
  Transmission Date: 20170830
  Serious: Yes (Death)
  Sender: FDA-Public Use
  Company Number: DE-TORRENT-00005497

PATIENT
  Age: 81 Year
  Sex: Male

DRUGS (19)
  1. PRADAXA [Suspect]
     Active Substance: DABIGATRAN ETEXILATE MESYLATE
  2. ACC [Concomitant]
     Active Substance: ACETYLCYSTEINE
  3. RINGER-ACETAT [Concomitant]
  4. ARTERENOL [Concomitant]
     Active Substance: NORADRENALINE HYDROCHLORIDE
  5. FUROSEMIDE. [Concomitant]
     Active Substance: FUROSEMIDE
  6. MOVICOL [Concomitant]
     Active Substance: POLYETHYLENE GLYCOL 3350\POTASSIUM CHLORIDE\SODIUM BICARBONATE\SODIUM CHLORIDE
  7. PANTOPRAZOL [Concomitant]
     Active Substance: PANTOPRAZOLE SODIUM
  8. SOLU-DECORTIN-H [Concomitant]
     Active Substance: PREDNISOLONE SODIUM SUCCINATE
  9. CISATRACURIUM BESILATE [Concomitant]
     Active Substance: CISATRACURIUM BESYLATE
  10. CLOPIDOGREL [Suspect]
     Active Substance: CLOPIDOGREL BISULFATE
  11. PREDNISOLONE. [Concomitant]
     Active Substance: PREDNISOLONE
  12. PROPOFOL. [Concomitant]
     Active Substance: PROPOFOL
  13. NOVAMINSULFON [Concomitant]
     Active Substance: METAMIZOLE
  14. TRAMADOLOR LONG 50 [Concomitant]
  15. ATORVASTATIN [Concomitant]
     Active Substance: ATORVASTATIN
  16. PIPERACILLIN SODIUM,TAZOBACTAM SODIUM [Concomitant]
     Active Substance: PIPERACILLIN SODIUM\TAZOBACTAM SODIUM
  17. CLINDAMYCIN. [Concomitant]
     Active Substance: CLINDAMYCIN
  18. KOCHSALZLOESUNG [Concomitant]
  19. PIRITRAMIDE [Concomitant]
     Active Substance: PIRITRAMIDE

REACTIONS (3)
  - Cerebral haemorrhage [Fatal]
  - Intraventricular haemorrhage [Fatal]
  - Brain oedema [Fatal]

NARRATIVE: CASE EVENT DATE: 20161021
